FAERS Safety Report 7087527-1 (Version None)
Quarter: 2010Q4

REPORT INFORMATION
  Report Type: 
  Country: None (occurrence: None)
  Receive Date: 20101108
  Receipt Date: 20101027
  Transmission Date: 20110411
  Serious: No
  Sender: FDA-Public Use
  Company Number: US-BIOGENIDEC-2010BI038112

PATIENT
  Age: 70 Year
  Sex: Male

DRUGS (2)
  1. TYSABRI [Suspect]
     Indication: MULTIPLE SCLEROSIS
     Route: 042
     Dates: start: 20100707
  2. AMPYRA [Concomitant]
     Indication: GAIT DISTURBANCE
     Dates: start: 20101001

REACTIONS (2)
  - FATIGUE [None]
  - FEELING COLD [None]
